FAERS Safety Report 11842651 (Version 1)
Quarter: 2015Q4

REPORT INFORMATION
  Report Type: Spontaneous
  Country: DE (occurrence: DE)
  Receive Date: 20151216
  Receipt Date: 20151216
  Transmission Date: 20160305
  Serious: Yes (Other)
  Sender: FDA-Public Use
  Company Number: GXKR2015DE005440

PATIENT
  Sex: Female

DRUGS (1)
  1. VALSARTAN HEXAL [Suspect]
     Active Substance: VALSARTAN
     Indication: PRODUCT USED FOR UNKNOWN INDICATION
     Dosage: 40 MG IN THE MORNING -0- 20 MG IN THE EVENING
     Route: 048

REACTIONS (1)
  - Loss of consciousness [Unknown]
